FAERS Safety Report 5344340-0 (Version None)
Quarter: 2007Q2

REPORT INFORMATION
  Report Type: 
  Country: None (occurrence: None)
  Receive Date: 20070604
  Receipt Date: 20070521
  Transmission Date: 20071010
  Serious: Yes (Other)
  Sender: FDA-Public Use
  Company Number: US-SHR-US-2007-011539

PATIENT
  Age: 68 Year
  Sex: Female
  Weight: 100 kg

DRUGS (22)
  1. BETASERON [Suspect]
     Indication: RELAPSING-REMITTING MULTIPLE SCLEROSIS
     Dosage: 8 MIU, EVERY 2D
     Route: 058
     Dates: start: 20011201, end: 20070118
  2. EVISTA [Concomitant]
     Indication: OSTEOPOROSIS
     Dosage: 60 MG, 1X/DAY, A.M.
     Route: 048
  3. OMEPRAZOLE [Concomitant]
     Dosage: 20 MG, 1X/DAY, A.M.
     Route: 048
  4. NEURONTIN [Concomitant]
     Dosage: UNK, 6X/DAY
     Route: 048
     Dates: start: 20070101
  5. LISINOPRIL [Concomitant]
     Indication: BLOOD PRESSURE ABNORMAL
     Dosage: 10 MG, 1X/DAY, A.M.
     Route: 048
     Dates: start: 20060101
  6. NATALCARE [Concomitant]
     Dosage: UNK, 1X/DAY, A.M.
     Route: 048
     Dates: start: 20060101
  7. CALCIUM WITH VITAMIN D [Concomitant]
     Indication: OSTEOPOROSIS
     Dosage: 600 MG, 3X/DAY
     Route: 048
     Dates: start: 20040101
  8. FLAXSEED OIL [Concomitant]
     Dosage: UNK, 1X/DAY
     Route: 048
     Dates: start: 20020101
  9. OSTEO BI-FLEX [Concomitant]
     Dosage: UNK, 1X/DAY
     Route: 048
     Dates: start: 20020101
  10. KLOR-CON [Concomitant]
     Dosage: 40 MEQ, UNK
  11. ADVAIR DISKUS 100/50 [Concomitant]
     Indication: COUGH
     Dosage: UNK, 2 DOSES, A.M. AND P.M.
  12. BETACARE PLUS [Concomitant]
  13. DILANTIN [Concomitant]
     Dosage: 100 MG, 1X/DAY, A.M.
  14. ASPIRIN [Concomitant]
     Indication: CARDIAC DISORDER
     Dosage: 81 MG/D, UNK
  15. GLUCOSAMINE W/CHONDROITIN [Concomitant]
     Dosage: UNK, UNK
  16. CORTICOSTEROIDS [Concomitant]
     Dosage: 4X
     Dates: start: 20060101
  17. PNEUMOVAX 23 [Concomitant]
     Dates: start: 20070411
  18. GLYCEROL 2.6% [Concomitant]
     Indication: TRIGEMINAL NEURALGIA
     Route: 050
     Dates: start: 19900101
  19. METHYLPREDNISOLONE 16MG TAB [Suspect]
     Route: 042
     Dates: start: 20061206, end: 20061208
  20. AMBIEN [Concomitant]
     Indication: INSOMNIA
     Dosage: .5 MG, 1X/DAY
  21. FLEXERIL [Concomitant]
     Indication: INSOMNIA
     Dosage: 10 MG, 2X/DAY
  22. MAGNESIUM SULFATE [Concomitant]
     Dosage: 1OR2, EVERY 2D

REACTIONS (23)
  - ANAEMIA [None]
  - ASCITES [None]
  - COAGULOPATHY [None]
  - CONFUSIONAL STATE [None]
  - CRYPTOGENIC CIRRHOSIS [None]
  - DIARRHOEA [None]
  - ELECTROENCEPHALOGRAM ABNORMAL [None]
  - EPISTAXIS [None]
  - GAIT DISTURBANCE [None]
  - GASTRITIS [None]
  - HEPATIC ENCEPHALOPATHY [None]
  - HEPATIC STEATOSIS [None]
  - HYPERKALAEMIA [None]
  - MEMORY IMPAIRMENT [None]
  - ODYNOPHAGIA [None]
  - OEDEMA [None]
  - OEDEMA DUE TO HEPATIC DISEASE [None]
  - OEDEMA PERIPHERAL [None]
  - PAIN IN EXTREMITY [None]
  - PORTAL HYPERTENSION [None]
  - PORTAL HYPERTENSIVE GASTROPATHY [None]
  - THROMBOCYTOPENIA [None]
  - VARICES OESOPHAGEAL [None]
